FAERS Safety Report 7153336-8 (Version None)
Quarter: 2010Q4

REPORT INFORMATION
  Report Type: 
  Country: None (occurrence: None)
  Receive Date: 20101213
  Receipt Date: 20101206
  Transmission Date: 20110411
  Serious: Yes (Hospitalization)
  Sender: FDA-Public Use
  Company Number: IT-ROCHE-746567

PATIENT
  Sex: Male

DRUGS (2)
  1. MYCOPHENOLATE MOFETIL [Suspect]
     Route: 048
     Dates: start: 20081105, end: 20101005
  2. TACROLIMUS [Suspect]
     Route: 048
     Dates: start: 20081105, end: 20101005

REACTIONS (2)
  - HEPATIC CANCER METASTATIC [None]
  - PATHOLOGICAL FRACTURE [None]
